FAERS Safety Report 23307261 (Version 1)
Quarter: 2023Q4

REPORT INFORMATION
  Report Type: Spontaneous
  Country: IT (occurrence: IT)
  Receive Date: 20231218
  Receipt Date: 20231218
  Transmission Date: 20240110
  Serious: Yes (Other)
  Sender: FDA-Public Use
  Company Number: None

PATIENT
  Age: 65 Year
  Sex: Female
  Weight: 60 kg

DRUGS (5)
  1. OXALIPLATIN [Suspect]
     Active Substance: OXALIPLATIN
     Indication: Colorectal adenocarcinoma
     Dates: start: 20230706, end: 20230706
  2. CAPECITABINE [Suspect]
     Active Substance: CAPECITABINE
     Indication: Colorectal adenocarcinoma
     Dates: start: 20230707, end: 20230720
  3. BISOPROLOL [Concomitant]
     Active Substance: BISOPROLOL\BISOPROLOL FUMARATE
     Dosage: LA PAZIENTE ASSUME CARDICOR 1.25 MG, 1 VOLTA AL GIORNO.
  4. RAMIPRIL [Concomitant]
     Active Substance: RAMIPRIL
  5. LANSOPRAZOLE [Concomitant]
     Active Substance: LANSOPRAZOLE

REACTIONS (5)
  - Nausea [Unknown]
  - Weight decreased [Recovered/Resolved]
  - Feeding disorder [Unknown]
  - Hypokalaemia [Recovered/Resolved]
  - Fluid intake reduced [Recovered/Resolved]

NARRATIVE: CASE EVENT DATE: 20230707
